FAERS Safety Report 7654151-9 (Version None)
Quarter: 2011Q3

REPORT INFORMATION
  Report Type: 
  Country: None (occurrence: None)
  Receive Date: 20110802
  Receipt Date: 20110802
  Transmission Date: 20111222
  Serious: Yes (Hospitalization)
  Sender: FDA-Public Use
  Company Number: None

PATIENT
  Age: 56 Year
  Sex: Male
  Weight: 92.6 kg

DRUGS (1)
  1. METOPROLOL TARTRATE [Suspect]
     Indication: HYPERTENSION
     Dosage: 100 MG BID PO
     Route: 048
     Dates: start: 20110118, end: 20110728

REACTIONS (2)
  - BRADYCARDIA [None]
  - HYPOTENSION [None]
